FAERS Safety Report 6356030-6 (Version None)
Quarter: 2009Q3

REPORT INFORMATION
  Report Type: 
  Country: None (occurrence: None)
  Receive Date: 20090915
  Receipt Date: 20090904
  Transmission Date: 20100115
  Serious: Yes (Life-Threatening, Hospitalization)
  Sender: FDA-Public Use
  Company Number: JP-AMGEN-US188289

PATIENT
  Sex: Female
  Weight: 53 kg

DRUGS (8)
  1. ENBREL [Suspect]
     Indication: RHEUMATOID ARTHRITIS
     Route: 058
     Dates: start: 20050516
  2. METHOTREXATE [Suspect]
     Route: 065
     Dates: start: 20030130, end: 20050113
  3. METHOTREXATE [Suspect]
     Route: 065
     Dates: start: 20050120, end: 20060601
  4. VOLTAREN [Concomitant]
     Route: 048
  5. ASPARA-CA [Concomitant]
     Route: 048
  6. GASTER [Concomitant]
     Route: 048
  7. ONE-ALPHA [Concomitant]
     Route: 048
  8. CLARITH [Concomitant]
     Dosage: 400 MG EVERY 1 DEC
     Route: 048

REACTIONS (1)
  - PNEUMOCYSTIS JIROVECI PNEUMONIA [None]
